FAERS Safety Report 9060993 (Version 3)
Quarter: 2013Q4

REPORT INFORMATION
  Report Type: Spontaneous
  Country: US (occurrence: US)
  Receive Date: 20130213
  Receipt Date: 20131010
  Transmission Date: 20140711
  Serious: Yes (Other)
  Sender: FDA-Public Use
  Company Number: US-BIOGENIDEC-2013BI012874

PATIENT
  Age: 51 Year
  Sex: Female

DRUGS (1)
  1. TYSABRI [Suspect]
     Indication: MULTIPLE SCLEROSIS
     Route: 042
     Dates: start: 20120816

REACTIONS (3)
  - Partial seizures [Recovered/Resolved]
  - Multiple sclerosis relapse [Recovered/Resolved]
  - Urinary tract infection [Recovered/Resolved]
